FAERS Safety Report 4735257-0 (Version None)
Quarter: 2005Q3

REPORT INFORMATION
  Report Type: 
  Country: None (occurrence: None)
  Receive Date: 20050805
  Receipt Date: 20050729
  Transmission Date: 20060218
  Serious: Yes (Other)
  Sender: FDA-Public Use
  Company Number: 2005UW11268

PATIENT
  Age: 52 Year
  Sex: Female

DRUGS (2)
  1. ZOMIG-ZMT [Suspect]
     Indication: MIGRAINE
     Route: 048
  2. ZOMIG [Suspect]
     Indication: MIGRAINE
     Route: 045

REACTIONS (3)
  - BLOOD GLUCOSE DECREASED [None]
  - DRUG INEFFECTIVE [None]
  - ILL-DEFINED DISORDER [None]
